FAERS Safety Report 19676346 (Version 3)
Quarter: 2021Q4

REPORT INFORMATION
  Report Type: Report from Study
  Country: US (occurrence: US)
  Receive Date: 20210809
  Receipt Date: 20211217
  Transmission Date: 20220303
  Serious: Yes (Hospitalization, Other)
  Sender: FDA-Public Use
  Company Number: US-NOVARTISPH-NVSC2021US176526

PATIENT
  Age: 67 Year
  Sex: Male
  Weight: 87.54 kg

DRUGS (20)
  1. ENTRESTO [Suspect]
     Active Substance: SACUBITRIL\VALSARTAN
     Indication: Cardiac failure
     Dosage: 1 DOSAGE FORM, BID
     Route: 048
     Dates: start: 20210716
  2. ENTRESTO [Suspect]
     Active Substance: SACUBITRIL\VALSARTAN
     Indication: Ischaemic cardiomyopathy
     Dosage: UNK, BID
     Route: 048
  3. COREG [Suspect]
     Active Substance: CARVEDILOL
     Indication: Ischaemic cardiomyopathy
     Dosage: 25 MG, BID (INCREASED AND CONTINUED OTHER MEDICATIONS)
     Route: 065
  4. COREG [Suspect]
     Active Substance: CARVEDILOL
     Indication: Essential hypertension
  5. ALTEPLASE [Suspect]
     Active Substance: ALTEPLASE
     Indication: Product used for unknown indication
     Dosage: UNK
     Route: 065
  6. ASPIRIN [Concomitant]
     Active Substance: ASPIRIN
     Indication: Product used for unknown indication
     Dosage: UNK
     Route: 065
  7. BRILINTA [Concomitant]
     Active Substance: TICAGRELOR
     Indication: Product used for unknown indication
     Dosage: 1 DOSAGE FORM, BID FOR 30 DAYS
     Route: 048
  8. ACETAMINOPHEN [Concomitant]
     Active Substance: ACETAMINOPHEN
     Indication: Product used for unknown indication
     Dosage: UNK UNK, PRN
     Route: 065
  9. ASPIRIN [Concomitant]
     Active Substance: ASPIRIN
     Indication: Product used for unknown indication
     Dosage: 1 DOSAGE FORM, QD
     Route: 048
  10. ACETAMINOPHEN [Concomitant]
     Active Substance: ACETAMINOPHEN
     Indication: Pain
     Dosage: 2 DOSAGE FORM, Q4H, PRN
     Route: 048
  11. AMIODARONE [Concomitant]
     Active Substance: AMIODARONE
     Indication: Product used for unknown indication
     Dosage: 1 DOSAGE FORM, BID (FOR 30 DAYS)
     Route: 048
  12. ATORVASTATIN [Concomitant]
     Active Substance: ATORVASTATIN
     Indication: Product used for unknown indication
     Dosage: 1 DOSAGE FORM, (BED TIME) FOR 90 DAYS
     Route: 048
  13. FARXIGA [Concomitant]
     Active Substance: DAPAGLIFLOZIN PROPANEDIOL
     Indication: Product used for unknown indication
     Dosage: 1 DOSAGE FORM, QD FOR 30 DAYS
     Route: 048
  14. GABAPENTIN [Concomitant]
     Active Substance: GABAPENTIN
     Indication: Product used for unknown indication
     Dosage: 1 DOSAGE FORM, BID
     Route: 048
  15. NOVOLOG [Concomitant]
     Active Substance: INSULIN ASPART
     Indication: Product used for unknown indication
     Dosage: UNK UNK, TID (100 UNITS/ML, SEVEN UNITS UNDER THE SKIN THREE TIMES DAILY WITH MEALS)
     Route: 065
  16. NOVOLOG [Concomitant]
     Active Substance: INSULIN ASPART
     Dosage: UNK UNK, TID (100 UNITS/ML, SEVEN UNITS WITH EACH MEAL)
     Route: 065
  17. LEVEMIR [Concomitant]
     Active Substance: INSULIN DETEMIR
     Indication: Product used for unknown indication
     Dosage: UNK (100 UNITS/ML SUBCUTANEOUS SOLUTION), INJECT 15 UNDER SKIN ONE TIME DAILY AT BED TIME DISCARD VI
     Route: 058
  18. LEVEMIR [Concomitant]
     Active Substance: INSULIN DETEMIR
     Dosage: UNK (100 UNITS/ML SUBCUTANEOUS SOLUTION), 20 UNITS AT NIGHT
     Route: 058
  19. SERTRALINE [Concomitant]
     Active Substance: SERTRALINE HYDROCHLORIDE
     Indication: Product used for unknown indication
     Dosage: 1 DOSAGE FORM, QD (FOR SIX WEEKS, 42 DAYS)
     Route: 048
  20. CILOSTAZOL [Concomitant]
     Active Substance: CILOSTAZOL
     Indication: Product used for unknown indication
     Dosage: 1 DOSAGE FORM, BID
     Route: 048

REACTIONS (26)
  - Clostridium difficile infection [Unknown]
  - Diarrhoea [Unknown]
  - Dehydration [Unknown]
  - Cerebrovascular accident [Recovered/Resolved]
  - Cerebral artery occlusion [Unknown]
  - Ventricular tachycardia [Unknown]
  - Carotid artery stenosis [Unknown]
  - Carotid artery occlusion [Unknown]
  - Coronary artery embolism [Unknown]
  - Chronic kidney disease [Unknown]
  - Arteriosclerosis coronary artery [Unknown]
  - Cerebral hypoperfusion [Unknown]
  - Diabetes mellitus [Unknown]
  - Hemiparesis [Unknown]
  - Sluggishness [Unknown]
  - Spontaneous internal carotid artery recanalisation [Unknown]
  - Essential hypertension [Unknown]
  - Coronary artery disease [Unknown]
  - Chronic obstructive pulmonary disease [Unknown]
  - Myocardial calcification [Unknown]
  - Aphasia [Unknown]
  - Contusion [Unknown]
  - Type V hyperlipidaemia [Unknown]
  - Blood pressure diastolic decreased [Unknown]
  - Fatigue [Unknown]
  - Dizziness [Unknown]

NARRATIVE: CASE EVENT DATE: 20210817
